FAERS Safety Report 7414314-4 (Version None)
Quarter: 2011Q2

REPORT INFORMATION
  Report Type: 
  Country: None (occurrence: None)
  Receive Date: 20110411
  Receipt Date: 20110411
  Transmission Date: 20111010
  Serious: Yes (Hospitalization)
  Sender: FDA-Public Use
  Company Number: None

PATIENT
  Age: 52 Year
  Sex: Female

DRUGS (1)
  1. MACRODANTIN [Suspect]
     Indication: URINARY TRACT INFECTION
     Dosage: 100MG QID PO
     Route: 048
     Dates: start: 20101118, end: 20101124

REACTIONS (4)
  - OCULAR HYPERAEMIA [None]
  - NAUSEA [None]
  - HEPATIC ENZYME INCREASED [None]
  - JAUNDICE [None]
